FAERS Safety Report 7805959-8 (Version None)
Quarter: 2011Q4

REPORT INFORMATION
  Report Type: 
  Country: None (occurrence: None)
  Receive Date: 20111011
  Receipt Date: 20110927
  Transmission Date: 20120403
  Serious: Yes (Hospitalization, Other)
  Sender: FDA-Public Use
  Company Number: GB-RANBAXY-2011R1-42746

PATIENT
  Age: 36 Year
  Sex: Female

DRUGS (9)
  1. LACOSAMIDE [Interacting]
     Route: 065
  2. PHENYTOIN [Interacting]
     Indication: EPILEPSY
     Dosage: 150 MG, UNK
     Route: 065
  3. TOPIRAMATE [Suspect]
     Indication: EPILEPSY
     Dosage: 250 MG, DAILY
     Route: 048
  4. OXCARBAZEPINE [Interacting]
     Dosage: 300 MG, 1 DAYS.
     Route: 065
  5. OXCARBAZEPINE [Interacting]
     Indication: EPILEPSY
     Dosage: 1200 MG, QD
     Route: 065
  6. LACOSAMIDE [Interacting]
     Indication: EPILEPSY
     Dosage: 100 MG, QD
     Route: 065
  7. OXCARBAZEPINE [Interacting]
     Indication: CONVULSION
     Dosage: 1350 MG, UNK
     Route: 065
  8. TOPIRAMATE [Interacting]
     Indication: CONVULSION
  9. LACOSAMIDE [Interacting]
     Dosage: 200 MG, UNK
     Route: 065

REACTIONS (6)
  - CONVULSION [None]
  - BALANCE DISORDER [None]
  - NEUROTOXICITY [None]
  - ANTICONVULSANT DRUG LEVEL DECREASED [None]
  - DIPLOPIA [None]
  - DRUG INTERACTION [None]
